FAERS Safety Report 4881503-2 (Version None)
Quarter: 2005Q4

REPORT INFORMATION
  Report Type: 
  Country: None (occurrence: None)
  Receive Date: 20051201
  Receipt Date: 20050729
  Transmission Date: 20060501
  Serious: No
  Sender: FDA-Public Use
  Company Number: 2005PV000660

PATIENT
  Age: 45 Year
  Sex: Female
  Weight: 84.369 kg

DRUGS (11)
  1. BYETTA [Suspect]
     Indication: DIABETES MELLITUS NON-INSULIN-DEPENDENT
     Dosage: 5 MCG;BID;SC
     Route: 058
     Dates: start: 20050727
  2. GLUCOPHAGE [Concomitant]
  3. AVANDIA [Concomitant]
  4. FORTAMET [Concomitant]
  5. ABILIFY [Concomitant]
  6. TOPAMAX [Concomitant]
  7. TRILEPTAL [Concomitant]
  8. BUSPAR [Concomitant]
  9. WELLBUTRIN [Concomitant]
  10. PROZAC [Concomitant]
  11. COZAAR [Concomitant]

REACTIONS (3)
  - DIZZINESS [None]
  - FATIGUE [None]
  - WEIGHT DECREASED [None]
